FAERS Safety Report 18841529 (Version 3)
Quarter: 2021Q3

REPORT INFORMATION
  Report Type: Report from Study
  Country: US (occurrence: US)
  Receive Date: 20210203
  Receipt Date: 20210812
  Transmission Date: 20211014
  Serious: Yes (Disabling)
  Sender: FDA-Public Use
  Company Number: US-SA-2021SA030372

PATIENT
  Age: 50 Year
  Sex: Male

DRUGS (2)
  1. DUPILUMAB [Suspect]
     Active Substance: DUPILUMAB
     Dosage: 300 MG, QOW
     Route: 058
     Dates: start: 20210105
  2. DUPILUMAB [Suspect]
     Active Substance: DUPILUMAB
     Indication: CHRONIC RHINOSINUSITIS WITH NASAL POLYPS
     Dosage: 300 MG, 1X
     Route: 058
     Dates: start: 20201230, end: 20201230

REACTIONS (5)
  - Loss of personal independence in daily activities [Unknown]
  - Back pain [Unknown]
  - Pain [Recovered/Resolved]
  - Arthralgia [Recovered/Resolved]
  - Joint stiffness [Recovered/Resolved]

NARRATIVE: CASE EVENT DATE: 20210105
